FAERS Safety Report 7034842-3 (Version None)
Quarter: 2010Q4

REPORT INFORMATION
  Report Type: 
  Country: None (occurrence: None)
  Receive Date: 20101008
  Receipt Date: 20101001
  Transmission Date: 20110411
  Serious: Yes (Death, Other)
  Sender: FDA-Public Use
  Company Number: US-ROCHE-724609

PATIENT
  Sex: Female
  Weight: 50.8 kg

DRUGS (4)
  1. PEGASYS [Suspect]
     Indication: HEPATITIS B
     Route: 065
     Dates: start: 20090531, end: 20100502
  2. COPEGUS [Suspect]
     Indication: PRODUCT USED FOR UNKNOWN INDICATION
     Route: 065
     Dates: start: 20090701, end: 20100501
  3. METOPROLOL TARTRATE [Concomitant]
     Dosage: FREQUENCY: DAILY
     Route: 048
  4. ASPIRIN [Concomitant]
     Dosage: FREQUENCY: DAILY
     Route: 048

REACTIONS (3)
  - DEATH [None]
  - HEPATIC MASS [None]
  - METASTASES TO LIVER [None]
